FAERS Safety Report 21831266 (Version 1)
Quarter: 2023Q1

REPORT INFORMATION
  Report Type: Spontaneous
  Country: US (occurrence: US)
  Receive Date: 20230106
  Receipt Date: 20230106
  Transmission Date: 20230418
  Serious: No
  Sender: FDA-Public Use
  Company Number: US-PFIZER INC-PV202300000628

PATIENT
  Age: 61 Year
  Sex: Male

DRUGS (1)
  1. IBRANCE [Suspect]
     Active Substance: PALBOCICLIB
     Dosage: 125 MG
     Dates: start: 20220726

REACTIONS (3)
  - Sinusitis [Unknown]
  - Sinus congestion [Unknown]
  - Tooth extraction [Unknown]

NARRATIVE: CASE EVENT DATE: 20220101
